FAERS Safety Report 14023065 (Version 1)
Quarter: 2017Q3

REPORT INFORMATION
  Report Type: Spontaneous
  Country: US (occurrence: US)
  Receive Date: 20170928
  Receipt Date: 20170928
  Transmission Date: 20171128
  Serious: No
  Sender: FDA-Public Use
  Company Number: US-SA-2016SA196808

PATIENT
  Age: 54 Year
  Sex: Female

DRUGS (12)
  1. POTASSIUM [Concomitant]
     Active Substance: POTASSIUM
  2. OXYCODONE [Concomitant]
     Active Substance: OXYCODONE
  3. VALIUM [Concomitant]
     Active Substance: DIAZEPAM
  4. TRAZODONE [Concomitant]
     Active Substance: TRAZODONE HYDROCHLORIDE
  5. PROTONIX [Concomitant]
     Active Substance: PANTOPRAZOLE SODIUM
  6. LASIX [Concomitant]
     Active Substance: FUROSEMIDE
  7. LORATADINE. [Concomitant]
     Active Substance: LORATADINE
  8. MORPHINE [Concomitant]
     Active Substance: MORPHINE
     Dosage: TIME RELEASE
  9. LISINOPRIL. [Concomitant]
     Active Substance: LISINOPRIL
  10. AUBAGIO [Suspect]
     Active Substance: TERIFLUNOMIDE
     Indication: MULTIPLE SCLEROSIS
     Route: 048
     Dates: start: 20160610
  11. CLONIDINE. [Concomitant]
     Active Substance: CLONIDINE
  12. VITAMIN B12 [Concomitant]
     Active Substance: CYANOCOBALAMIN

REACTIONS (1)
  - Drug ineffective [Unknown]
